FAERS Safety Report 7650208-7 (Version None)
Quarter: 2011Q3

REPORT INFORMATION
  Report Type: 
  Country: None (occurrence: None)
  Receive Date: 20110802
  Receipt Date: 20110726
  Transmission Date: 20111222
  Serious: Yes (Hospitalization)
  Sender: FDA-Public Use
  Company Number: US-US-EMD SERONO, INC.-7073519

PATIENT
  Sex: Male

DRUGS (2)
  1. LEXAPRO [Concomitant]
     Dates: start: 20110712
  2. REBIF [Suspect]
     Route: 058
     Dates: start: 20110526

REACTIONS (3)
  - PLATELET COUNT DECREASED [None]
  - HEPATIC ENZYME INCREASED [None]
  - ARTHROPOD BITE [None]
